FAERS Safety Report 17900866 (Version 2)
Quarter: 2020Q3

REPORT INFORMATION
  Report Type: Spontaneous
  Country: US (occurrence: US)
  Receive Date: 20200616
  Receipt Date: 20200713
  Transmission Date: 20201103
  Serious: No
  Sender: FDA-Public Use
  Company Number: US-SA-2020SA154658

PATIENT

DRUGS (6)
  1. MONTELUKAST [Concomitant]
     Active Substance: MONTELUKAST SODIUM
     Dosage: UNK
  2. DUPIXENT [Suspect]
     Active Substance: DUPILUMAB
     Indication: DERMATITIS ATOPIC
     Dosage: 300 MG, QOW
     Route: 058
     Dates: start: 20190322
  3. VITAMIN C [Concomitant]
     Active Substance: ASCORBIC ACID
     Dosage: UNK
  4. SYMBICORT [Concomitant]
     Active Substance: BUDESONIDE\FORMOTEROL FUMARATE DIHYDRATE
     Dosage: UNK
  5. VITAMINS NOS [Concomitant]
     Active Substance: VITAMINS
     Dosage: UNK
  6. SINGULAIR [Concomitant]
     Active Substance: MONTELUKAST SODIUM
     Dosage: UNK

REACTIONS (6)
  - Sleep disorder [Not Recovered/Not Resolved]
  - Dermatitis atopic [Not Recovered/Not Resolved]
  - Headache [Not Recovered/Not Resolved]
  - Rash [Not Recovered/Not Resolved]
  - Arthralgia [Not Recovered/Not Resolved]
  - Discomfort [Not Recovered/Not Resolved]
